FAERS Safety Report 13826046 (Version 1)
Quarter: 2017Q3

REPORT INFORMATION
  Report Type: Spontaneous
  Country: GB (occurrence: GB)
  Receive Date: 20170802
  Receipt Date: 20170802
  Transmission Date: 20171127
  Serious: Yes (Other)
  Sender: FDA-Public Use
  Company Number: GB-TEVA-791425ACC

PATIENT
  Age: 35 Year
  Sex: Male
  Weight: 49 kg

DRUGS (17)
  1. VORICONAZOLE. [Suspect]
     Active Substance: VORICONAZOLE
     Indication: FUNGAL INFECTION
     Dosage: 800 MILLIGRAM DAILY;
     Route: 048
     Dates: start: 20170604
  2. COTRIMOXAZOLE [Concomitant]
     Active Substance: SULFAMETHOXAZOLE\TRIMETHOPRIM
  3. ITRACONAZOLE. [Concomitant]
     Active Substance: ITRACONAZOLE
     Dates: start: 20170416, end: 20170625
  4. TEICOPLANIN [Concomitant]
     Active Substance: TEICOPLANIN
     Dates: start: 20170613, end: 20170621
  5. TIGECYCLINE. [Concomitant]
     Active Substance: TIGECYCLINE
     Dates: start: 20170621, end: 20170703
  6. METOCLOPRAMIDE HYDROCHLORIDE. [Concomitant]
     Active Substance: METOCLOPRAMIDE HYDROCHLORIDE
  7. OMEPRAZOLE. [Concomitant]
     Active Substance: OMEPRAZOLE
  8. ACICLOVIR [Concomitant]
     Active Substance: ACYCLOVIR
     Dates: start: 20170605
  9. AMPHOTERICIN [Concomitant]
     Active Substance: AMPHOTERICIN B
     Indication: FUNGAL INFECTION
     Dates: start: 20170626, end: 20170704
  10. LEVOFLOXACIN. [Concomitant]
     Active Substance: LEVOFLOXACIN
     Dates: start: 20170703, end: 20170706
  11. VORICONAZOLE. [Suspect]
     Active Substance: VORICONAZOLE
     Indication: FUNGAL INFECTION
     Dosage: 400 MILLIGRAM DAILY;
     Route: 048
     Dates: end: 20170605
  12. MERCAPTOPURINE. [Concomitant]
     Active Substance: MERCAPTOPURINE
     Dates: start: 20170519, end: 20170520
  13. NYSTATIN. [Concomitant]
     Active Substance: NYSTATIN
  14. DALTEPARIN SODIUM [Concomitant]
     Active Substance: DALTEPARIN SODIUM
  15. ONDANSETRON HYDROCHLORIDE. [Concomitant]
     Active Substance: ONDANSETRON HYDROCHLORIDE
  16. COLECALCIFEROL [Concomitant]
     Active Substance: CHOLECALCIFEROL
  17. CYCLIZINE [Concomitant]
     Active Substance: CYCLIZINE

REACTIONS (5)
  - Abnormal dreams [Recovered/Resolved]
  - Insomnia [Recovered/Resolved]
  - Heart rate increased [Recovered/Resolved]
  - Hallucination [Recovered/Resolved]
  - Energy increased [Recovered/Resolved]

NARRATIVE: CASE EVENT DATE: 20170704
